FAERS Safety Report 6831177-6 (Version None)
Quarter: 2010Q3

REPORT INFORMATION
  Report Type: 
  Country: None (occurrence: None)
  Receive Date: 20100707
  Receipt Date: 20100624
  Transmission Date: 20110219
  Serious: Yes (Other)
  Sender: FDA-Public Use
  Company Number: 231557J10USA

PATIENT
  Age: 31 Year
  Sex: Female

DRUGS (12)
  1. REBIF [Suspect]
     Indication: MULTIPLE SCLEROSIS
     Dosage: 44 MCG, 3 IN 1 WK, SUBCUTANEOUS, 44 MCG, 3 IN 1 WK, SUBCUTANEOUS
     Route: 058
     Dates: start: 20090325, end: 20100601
  2. REBIF [Suspect]
     Indication: MULTIPLE SCLEROSIS
     Dosage: 44 MCG, 3 IN 1 WK, SUBCUTANEOUS, 44 MCG, 3 IN 1 WK, SUBCUTANEOUS
     Route: 058
     Dates: start: 20100623
  3. GLUCOPHAGE [Concomitant]
  4. GLIMEPIRIDE [Concomitant]
  5. LANTUS [Concomitant]
  6. LIPITOR [Concomitant]
  7. NIACIN [Concomitant]
  8. ZOLOFT [Concomitant]
  9. XANAX [Concomitant]
  10. TOPAMAX [Concomitant]
  11. RESTORIL [Concomitant]
  12. AMBIEN [Concomitant]

REACTIONS (18)
  - ANGER [None]
  - ANKLE FRACTURE [None]
  - ARTHRALGIA [None]
  - ASTHENIA [None]
  - BACK PAIN [None]
  - DIABETES MELLITUS INADEQUATE CONTROL [None]
  - FACE INJURY [None]
  - FALL [None]
  - HEAD INJURY [None]
  - HEADACHE [None]
  - HEPATIC ENZYME INCREASED [None]
  - INJECTION SITE ERYTHEMA [None]
  - INJECTION SITE HAEMATOMA [None]
  - INJECTION SITE REACTION [None]
  - LOSS OF CONSCIOUSNESS [None]
  - MALAISE [None]
  - SUICIDAL IDEATION [None]
  - SUICIDE ATTEMPT [None]
